FAERS Safety Report 18054148 (Version 3)
Quarter: 2020Q3

REPORT INFORMATION
  Report Type: Spontaneous
  Country: CZ (occurrence: CZ)
  Receive Date: 20200722
  Receipt Date: 20200915
  Transmission Date: 20201103
  Serious: Yes (Other)
  Sender: FDA-Public Use
  Company Number: CZ-MYLANLABS-2020M1064755

PATIENT
  Age: 43 Year
  Sex: Female

DRUGS (9)
  1. HULIO [Suspect]
     Active Substance: ADALIMUMAB-FKJP
     Indication: ANKYLOSING SPONDYLITIS
  2. NOLPAZA [Concomitant]
     Active Substance: PANTOPRAZOLE SODIUM
     Dosage: 40 MILLIGRAM, QD 1?0?0
  3. IBALGIN [Concomitant]
     Active Substance: IBUPROFEN
     Dosage: 400 MILLIGRAM, QD 1X1
  4. HULIO [Suspect]
     Active Substance: ADALIMUMAB-FKJP
     Indication: RHEUMATOID ARTHRITIS
     Dosage: 40 MILLIGRAM
     Route: 042
     Dates: start: 20200114, end: 20200622
  5. NEBILET [Concomitant]
     Active Substance: NEBIVOLOL
     Dosage: 5 MILLIGRAM 1/2?0?0
  6. PRESTARIUM                         /00790701/ [Concomitant]
     Active Substance: PERINDOPRIL
     Dosage: 5 MILLIGRAM 1/2?0?0
  7. DIENILLE [Concomitant]
     Dosage: UNK UNK, QD 1?0?0
  8. EZETROL [Concomitant]
     Active Substance: EZETIMIBE
     Dosage: 10 MILLIGRAM, QD 0?0?1
  9. XYZAL [Concomitant]
     Active Substance: LEVOCETIRIZINE DIHYDROCHLORIDE
     Dosage: UNK, QD 1X1

REACTIONS (1)
  - Drug ineffective [Unknown]

NARRATIVE: CASE EVENT DATE: 20200713
